FAERS Safety Report 6635177-0 (Version None)
Quarter: 2010Q1

REPORT INFORMATION
  Report Type: 
  Country: None (occurrence: None)
  Receive Date: 20100315
  Receipt Date: 20100304
  Transmission Date: 20100710
  Serious: Yes (Other)
  Sender: FDA-Public Use
  Company Number: US-ASTRAZENECA-2010SE09633

PATIENT
  Age: 15 Year
  Sex: Male
  Weight: 45.4 kg

DRUGS (1)
  1. SEROQUEL XR [Suspect]
     Indication: PAIN
     Route: 048

REACTIONS (5)
  - DIZZINESS [None]
  - DYSARTHRIA [None]
  - LOSS OF CONSCIOUSNESS [None]
  - MEDICATION ERROR [None]
  - SOMNOLENCE [None]
